FAERS Safety Report 15435782 (Version 1)
Quarter: 2018Q3

REPORT INFORMATION
  Report Type: Spontaneous
  Country: US (occurrence: US)
  Receive Date: 20180927
  Receipt Date: 20180927
  Transmission Date: 20181010
  Serious: No
  Sender: FDA-Public Use
  Company Number: US-BAYER-2018-178931

PATIENT
  Sex: Female

DRUGS (2)
  1. MIRENA [Suspect]
     Active Substance: LEVONORGESTREL
     Dosage: 20 MCG/24HR, CONT
     Route: 015
     Dates: start: 201801
  2. MIRENA [Suspect]
     Active Substance: LEVONORGESTREL
     Dosage: 20 MCG/24HR, CONT
     Route: 015

REACTIONS (8)
  - Breast discomfort [Not Recovered/Not Resolved]
  - Menstruation delayed [None]
  - Dysmenorrhoea [Not Recovered/Not Resolved]
  - Amenorrhoea [Recovered/Resolved]
  - Fatigue [Not Recovered/Not Resolved]
  - Adnexa uteri pain [Not Recovered/Not Resolved]
  - Vaginal discharge [None]
  - Hypomenorrhoea [None]

NARRATIVE: CASE EVENT DATE: 201808
